FAERS Safety Report 20741089 (Version 4)
Quarter: 2022Q2

REPORT INFORMATION
  Report Type: Report from Study
  Country: FR (occurrence: None)
  Receive Date: 20220422
  Receipt Date: 20220511
  Transmission Date: 20220721
  Serious: Yes (Hospitalization)
  Sender: FDA-Public Use
  Company Number: FR-ROCHE-3077214

PATIENT
  Age: 55 Year
  Sex: Female

DRUGS (3)
  1. ATEZOLIZUMAB [Suspect]
     Active Substance: ATEZOLIZUMAB
     Indication: Cervix carcinoma
     Dosage: LAST DOSE ADMINISTERED ON 14/MAR/2022?FIRST CYCLE OF TREATMENT WAS ADMINISTERED ON : 18-OCT-2021?LAS
     Route: 042
     Dates: start: 20211018, end: 20220314
  2. CISPLATIN [Suspect]
     Active Substance: CISPLATIN
     Indication: Cervix carcinoma
     Dosage: LAST DOSE ADMINISTERED ON 16/NOV/2021?FIRST CYCLE OF TREATMENT WAS ADMINISTERED ON : 18-OCT-2021?LAS
     Route: 042
     Dates: start: 20211018, end: 20211116
  3. ROSUVASTATIN [Concomitant]
     Active Substance: ROSUVASTATIN
     Route: 065

REACTIONS (2)
  - Pancreatitis acute [Recovered/Resolved]
  - Cholelithiasis [Recovered/Resolved]

NARRATIVE: CASE EVENT DATE: 20220412
